FAERS Safety Report 4430900-8 (Version None)
Quarter: 2004Q3

REPORT INFORMATION
  Report Type: 
  Country: None (occurrence: None)
  Receive Date: 20040823
  Receipt Date: 20040813
  Transmission Date: 20050211
  Serious: Yes (Hospitalization)
  Sender: FDA-Public Use
  Company Number: FR-ROCHE-377656

PATIENT
  Age: 66 Year
  Sex: Male

DRUGS (7)
  1. ROCEPHIN [Suspect]
     Indication: DRUG USE FOR UNKNOWN INDICATION
     Route: 065
     Dates: start: 20040703, end: 20040704
  2. LEXOMIL [Concomitant]
  3. SURBRONC [Concomitant]
  4. ACETAMINOPHEN [Concomitant]
  5. SEROPRAM [Concomitant]
  6. ATARAX [Concomitant]
  7. SPIRONOLACTONE [Concomitant]

REACTIONS (3)
  - LOSS OF CONSCIOUSNESS [None]
  - LUNG DISORDER [None]
  - MALAISE [None]
